FAERS Safety Report 8621764-7 (Version None)
Quarter: 2012Q3

REPORT INFORMATION
  Report Type: 
  Country: None (occurrence: None)
  Receive Date: 20120821
  Receipt Date: 20120821
  Transmission Date: 20120928
  Serious: Yes (Hospitalization)
  Sender: FDA-Public Use
  Company Number: None

PATIENT
  Sex: Male

DRUGS (1)
  1. RIBAVIRIN [Suspect]
     Dosage: 400 MG BID ORALLY
     Route: 048
     Dates: start: 20120419, end: 20120801

REACTIONS (2)
  - THROMBOCYTOPENIA [None]
  - ANAEMIA [None]
